FAERS Safety Report 19742577 (Version 2)
Quarter: 2021Q3

REPORT INFORMATION
  Report Type: Spontaneous
  Country: US (occurrence: US)
  Receive Date: 20210824
  Receipt Date: 20210908
  Transmission Date: 20211014
  Serious: No
  Sender: FDA-Public Use
  Company Number: US-PFIZER INC-2020097860

PATIENT
  Age: 70 Year
  Sex: Female

DRUGS (3)
  1. PREMARIN [Suspect]
     Active Substance: ESTROGENS, CONJUGATED
     Indication: MENOPAUSAL SYMPTOMS
  2. PREMARIN [Suspect]
     Active Substance: ESTROGENS, CONJUGATED
     Indication: ATROPHIC VULVOVAGINITIS
     Dosage: UNK (4 SAMPLE TUBES, 0.14 OZ EACH TUBE)
     Route: 067
  3. LYRICA [Concomitant]
     Active Substance: PREGABALIN
     Dosage: UNK

REACTIONS (8)
  - Vulvovaginal pain [Unknown]
  - Memory impairment [Unknown]
  - Product dispensing error [Unknown]
  - Vulvovaginal dryness [Unknown]
  - Dyspareunia [Unknown]
  - Dysuria [Unknown]
  - Speech disorder [Unknown]
  - Pharyngeal ulceration [Unknown]
